FAERS Safety Report 6521625-3 (Version None)
Quarter: 2009Q4

REPORT INFORMATION
  Report Type: 
  Country: None (occurrence: None)
  Receive Date: 20091230
  Receipt Date: 20091217
  Transmission Date: 20100525
  Serious: Yes (Hospitalization)
  Sender: FDA-Public Use
  Company Number: PHHY2009AU53896

PATIENT
  Sex: Male

DRUGS (2)
  1. CLOZARIL [Suspect]
     Indication: SCHIZOPHRENIA
     Dosage: 700 MG, UNK
     Dates: start: 19940923
  2. RISPERIDONE [Concomitant]
     Dosage: 4 MG NOCTE
     Route: 048

REACTIONS (1)
  - SCHIZOPHRENIA [None]
